FAERS Safety Report 5036338-7 (Version None)
Quarter: 2006Q2

REPORT INFORMATION
  Report Type: 
  Country: None (occurrence: None)
  Receive Date: 20060601
  Receipt Date: 20050801
  Transmission Date: 20061013
  Serious: Yes (Other)
  Sender: FDA-Public Use
  Company Number: 412629

PATIENT
  Age: 20 Year
  Sex: Female
  Weight: 56.7 kg

DRUGS (4)
  1. LARIAM [Suspect]
     Indication: MALARIA PROPHYLAXIS
     Dosage: 250 MG 1 PER WEEK ORAL
     Route: 048
     Dates: start: 20050712, end: 20050729
  2. LEXAPRO [Concomitant]
  3. BIRTH CONTROL PILLS NOS (ORAL CONTRACEPTIVE NOS) [Concomitant]
  4. ALBUTEROL [Concomitant]

REACTIONS (3)
  - DEPRESSION [None]
  - PANIC ATTACK [None]
  - PARANOIA [None]
